FAERS Safety Report 15233416 (Version 2)
Quarter: 2018Q3

REPORT INFORMATION
  Report Type: Spontaneous
  Country: US (occurrence: US)
  Receive Date: 20180802
  Receipt Date: 20180921
  Transmission Date: 20181010
  Serious: No
  Sender: FDA-Public Use
  Company Number: US-AVEDRO-AVE-2018-0175-AE

PATIENT
  Sex: Male

DRUGS (3)
  1. PHOTREXA [Suspect]
     Active Substance: RIBOFLAVIN 5^-PHOSPHATE SODIUM
     Indication: CORNEAL DISORDER
     Route: 047
  2. PHOTREXA VISCOUS [Suspect]
     Active Substance: RIBOFLAVIN 5^-PHOSPHATE SODIUM
     Indication: CORNEAL DISORDER
     Route: 047
  3. KXL SYSTEM [Suspect]
     Active Substance: DEVICE
     Indication: CORNEAL DISORDER
     Route: 047

REACTIONS (1)
  - Ocular procedural complication [Unknown]
